FAERS Safety Report 8828684 (Version 1)
Quarter: 2012Q4

REPORT INFORMATION
  Report Type: Spontaneous
  Country: US (occurrence: None)
  Receive Date: 20121004
  Receipt Date: 20121004
  Transmission Date: 20130627
  Serious: Yes (Hospitalization)
  Sender: FDA-Public Use
  Company Number: 251544420120006

PATIENT
  Age: 21 Year
  Sex: Female

DRUGS (2)
  1. BANANA BOAT ULTRAMIST SPORT PERFORMANCE SPF 50 [Suspect]
     Indication: SUNBURN
     Dates: start: 20120915
  2. BANANA BOAT ULTRAMIST SPORT PERFORMANCE SPF 50 [Suspect]
     Indication: PROPHYLAXIS
     Dates: start: 20120915

REACTIONS (5)
  - Burns first degree [None]
  - Injury [None]
  - Burns third degree [None]
  - Burns second degree [None]
  - Application site burn [None]
